FAERS Safety Report 14225306 (Version 1)
Quarter: 2017Q4

REPORT INFORMATION
  Report Type: Report from Study
  Country: US (occurrence: US)
  Receive Date: 20171127
  Receipt Date: 20171127
  Transmission Date: 20180321
  Serious: Yes (Other)
  Sender: FDA-Public Use
  Company Number: US-ROCHE-2027543

PATIENT
  Age: 64 Year
  Sex: Male

DRUGS (1)
  1. GANCICLOVIR. [Suspect]
     Active Substance: GANCICLOVIR
     Indication: GLIOBLASTOMA
     Dosage: OVER 1 HOUR, EVERY 12 H, FOR A TOTAL OF 28 DOSES OVER 14 DAYS
     Route: 042

REACTIONS (2)
  - Hyponatraemia [Recovering/Resolving]
  - Depressed level of consciousness [Recovering/Resolving]
